FAERS Safety Report 8965705 (Version 1)
Quarter: 2012Q4

REPORT INFORMATION
  Report Type: Spontaneous
  Country: US (occurrence: None)
  Receive Date: 20121212
  Receipt Date: 20121212
  Transmission Date: 20130627
  Serious: Yes (Other)
  Sender: FDA-Public Use
  Company Number: None

PATIENT

DRUGS (3)
  1. TOBRAMYCIN [Suspect]
     Indication: INFECTION
  2. NAFCILLIN [Concomitant]
  3. RIFAMPIN [Concomitant]

REACTIONS (1)
  - Nephropathy toxic [None]
